FAERS Safety Report 9096835 (Version 1)
Quarter: 2013Q1

REPORT INFORMATION
  Report Type: Spontaneous
  Country: US (occurrence: None)
  Receive Date: 20130124
  Receipt Date: 20130124
  Transmission Date: 20140127
  Serious: Yes (Death)
  Sender: FDA-Public Use
  Company Number: 2013SP000339

PATIENT
  Age: 47 Year
  Sex: Female

DRUGS (9)
  1. DILTIAZEM HYDROCHLORIDE [Suspect]
     Indication: PRODUCT USED FOR UNKNOWN INDICATION
  2. CITALOPRAM [Suspect]
  3. IRON [Suspect]
  4. OXYCODONE [Suspect]
  5. ACETAMINOPHEN [Suspect]
  6. GABAPENTIN [Suspect]
  7. LISINOPRIL [Suspect]
  8. MODAFINIL [Suspect]
  9. TRAZODONE [Suspect]

REACTIONS (1)
  - Toxicity to various agents [None]
